FAERS Safety Report 10165698 (Version 2)
Quarter: 2014Q2

REPORT INFORMATION
  Report Type: Spontaneous
  Country: US (occurrence: US)
  Receive Date: 20140510
  Receipt Date: 20140510
  Transmission Date: 20141212
  Serious: Yes (Other)
  Sender: FDA-Public Use
  Company Number: US-BRISTOL-MYERS SQUIBB COMPANY-19893692

PATIENT
  Age: 57 Year
  Sex: Female
  Weight: 71.65 kg

DRUGS (28)
  1. BYDUREON  2MG SUSPENSION [Suspect]
     Indication: TYPE 2 DIABETES MELLITUS
     Route: 058
     Dates: start: 20130916
  2. VITAMIN E [Concomitant]
     Dosage: TABS
     Dates: start: 20130905
  3. VITAMIN D3 [Concomitant]
     Dosage: TABS
     Dates: start: 20130905
  4. VITAMIN C [Concomitant]
     Dosage: TABS
  5. VITAMIN B12 [Concomitant]
     Dosage: TABS
  6. TYLENOL EXTRA STRENGTH [Concomitant]
     Dosage: 1TAB
  7. SAVELLA [Concomitant]
  8. SAVELLA [Concomitant]
     Dosage: TABS
  9. REMICADE [Concomitant]
     Route: 042
  10. PREMPRO [Concomitant]
     Dosage: 1DF: 0.45-1.5MG?TABS
  11. POTASSIUM CHLORIDE [Concomitant]
     Dosage: 1DF: 20MEQ?CAP
  12. ONDANSETRON [Concomitant]
     Dosage: TAB
  13. NIASPAN [Concomitant]
     Dosage: AT BEDTIME
  14. NEXIUM [Concomitant]
  15. LIDODERM [Concomitant]
  16. LEVOTHYROXINE SODIUM [Concomitant]
     Dosage: TABS
  17. GABAPENTIN [Concomitant]
     Dosage: TABS
  18. FLUTICASONE PROPIONATE [Concomitant]
     Dosage: AT BEDTIME
  19. DILAUDID [Concomitant]
     Dosage: AT BEDTIME
  20. CYCLOBENZAPRINE HCL [Concomitant]
  21. CYCLOBENZAPRINE HCL [Concomitant]
  22. CRESTOR [Concomitant]
     Dosage: TABS
  23. CENTRUM [Concomitant]
     Dosage: TAB
  24. CELEBREX [Concomitant]
  25. CARVEDILOL [Concomitant]
     Dosage: 1TAB
  26. CALCIUM CITRATE [Concomitant]
     Dosage: 2TABS
  27. ASA [Concomitant]
     Dosage: TABS
  28. AMLODIPINE BESYLATE [Concomitant]
     Dosage: 0.5MG TABS

REACTIONS (1)
  - Injection site mass [Unknown]
